FAERS Safety Report 5222974-1 (Version None)
Quarter: 2007Q1

REPORT INFORMATION
  Report Type: 
  Country: None (occurrence: None)
  Receive Date: 20070129
  Receipt Date: 20070119
  Transmission Date: 20070707
  Serious: Yes (Other)
  Sender: FDA-Public Use
  Company Number: US-PFIZER INC-2006131641

PATIENT
  Sex: Female
  Weight: 49.9 kg

DRUGS (1)
  1. XALATAN [Suspect]
     Indication: GLAUCOMA

REACTIONS (3)
  - BLEPHARAL PAPILLOMA [None]
  - EYELID BLEEDING [None]
  - EYELID MARGIN CRUSTING [None]
